FAERS Safety Report 15547595 (Version 1)
Quarter: 2018Q4

REPORT INFORMATION
  Report Type: Spontaneous
  Country: GB (occurrence: GB)
  Receive Date: 20181024
  Receipt Date: 20181024
  Transmission Date: 20190205
  Serious: Yes (Life-Threatening, Other)
  Sender: FDA-Public Use
  Company Number: GB-ELI_LILLY_AND_COMPANY-GB201810009549

PATIENT
  Age: 42 Year
  Sex: Male
  Weight: 72 kg

DRUGS (1)
  1. DULOXETINE HYDROCHLORIDE. [Suspect]
     Active Substance: DULOXETINE HYDROCHLORIDE
     Indication: MAJOR DEPRESSION
     Dosage: 60 MG, UNKNOWN
     Route: 048
     Dates: start: 20170501, end: 20180912

REACTIONS (3)
  - Paraesthesia [Not Recovered/Not Resolved]
  - Insomnia [Unknown]
  - Rapid eye movements sleep abnormal [Unknown]

NARRATIVE: CASE EVENT DATE: 20170610
